FAERS Safety Report 25899596 (Version 1)
Quarter: 2025Q4

REPORT INFORMATION
  Report Type: Spontaneous
  Country: EU (occurrence: EU)
  Receive Date: 20251009
  Receipt Date: 20251009
  Transmission Date: 20260117
  Serious: Yes (Other)
  Sender: BAXTER
  Company Number: None

PATIENT
  Age: 59 Year
  Sex: Male
  Weight: 94 kg

DRUGS (5)
  1. CYCLOPHOSPHAMIDE [Suspect]
     Active Substance: CYCLOPHOSPHAMIDE
     Indication: Encephalitis autoimmune
     Dosage: 1 DOSAGE FORM, QD
     Route: 042
     Dates: start: 20250515, end: 20250515
  2. CYCLOPHOSPHAMIDE [Suspect]
     Active Substance: CYCLOPHOSPHAMIDE
     Dosage: 1 DOSAGE FORM, QD
     Route: 042
     Dates: start: 20250610, end: 20250610
  3. VIMPAT [Concomitant]
     Active Substance: LACOSAMIDE
     Indication: Epilepsy
     Dosage: 150 MG, NUMBER OF UNITS IN THE INTERVAL: 12 HOURS
     Route: 048
     Dates: start: 2024
  4. ESCITALOPRAM [Concomitant]
     Active Substance: ESCITALOPRAM OXALATE
     Indication: Depression
     Dosage: 10 MG, QD
     Route: 048
     Dates: start: 2024
  5. CORTISONE [Concomitant]
     Active Substance: CORTISONE
     Indication: Encephalitis autoimmune
     Dosage: 7.5 MG, QD
     Route: 048
     Dates: start: 2024

REACTIONS (1)
  - Dermatitis bullous [Not Recovered/Not Resolved]

NARRATIVE: CASE EVENT DATE: 20250515
